FAERS Safety Report 4296057-1 (Version None)
Quarter: 2004Q1

REPORT INFORMATION
  Report Type: 
  Country: None (occurrence: None)
  Receive Date: 20040212
  Receipt Date: 20040206
  Transmission Date: 20041129
  Serious: Yes (Other)
  Sender: FDA-Public Use
  Company Number: 2004197650JP

PATIENT
  Age: 17 Year
  Sex: Male

DRUGS (2)
  1. HALCION [Suspect]
     Dosage: 10 TABS, ORAL
     Route: 048
     Dates: start: 20040201, end: 20040201
  2. ISOMYTAL (AMOBARBITAL) [Suspect]
     Dosage: 15 G, ORAL
     Route: 048
     Dates: start: 20040201, end: 20040201

REACTIONS (7)
  - BLISTER [None]
  - CONFUSIONAL STATE [None]
  - ERYTHEMA [None]
  - INTENTIONAL OVERDOSE [None]
  - PYREXIA [None]
  - SKIN INFLAMMATION [None]
  - SUICIDE ATTEMPT [None]
